FAERS Safety Report 4383735-9 (Version None)
Quarter: 2004Q2

REPORT INFORMATION
  Report Type: 
  Country: None (occurrence: None)
  Receive Date: 20040608
  Receipt Date: 20030728
  Transmission Date: 20050107
  Serious: Yes (Other)
  Sender: FDA-Public Use
  Company Number: 200312598BCC

PATIENT
  Age: 51 Year
  Sex: Female
  Weight: 68.0396 kg

DRUGS (4)
  1. ALEVE [Suspect]
     Indication: HEADACHE
     Dosage: 2640 MG, TOTAL DAILY, ORAL
     Route: 048
     Dates: start: 20030725, end: 20030727
  2. ALEVE [Suspect]
     Indication: NAUSEA
     Dosage: 2640 MG, TOTAL DAILY, ORAL
     Route: 048
     Dates: start: 20030725, end: 20030727
  3. LISINOPRIL [Concomitant]
  4. PREMARIN [Concomitant]

REACTIONS (3)
  - ABDOMINAL PAIN UPPER [None]
  - BLOOD URINE [None]
  - VOMITING [None]
